FAERS Safety Report 6128094-6 (Version None)
Quarter: 2009Q1

REPORT INFORMATION
  Report Type: 
  Country: None (occurrence: None)
  Receive Date: 20090319
  Receipt Date: 20090305
  Transmission Date: 20090719
  Serious: Yes (Other)
  Sender: FDA-Public Use
  Company Number: 2009000293

PATIENT
  Age: 53 Year
  Sex: Female

DRUGS (6)
  1. ERLOTINIB (ERLOTINIB) (TABLET) (ERLOTINIB) [Suspect]
     Indication: LUNG ADENOCARCINOMA
     Dosage: (150 MG, QD), ORAL
     Route: 048
     Dates: start: 20081127
  2. DEPAKENE [Concomitant]
  3. GLYCEOL (GLYCEOL) [Concomitant]
  4. BETAMETHASONE [Concomitant]
  5. PURSENNID (SENNA LEAF) [Concomitant]
  6. MUCOSTA (REBAMIPIDE) [Concomitant]

REACTIONS (3)
  - INGROWING NAIL [None]
  - PLATELET COUNT DECREASED [None]
  - RASH [None]
